FAERS Safety Report 23454018 (Version 1)
Quarter: 2024Q1

REPORT INFORMATION
  Report Type: Spontaneous
  Country: US (occurrence: US)
  Receive Date: 20240130
  Receipt Date: 20240130
  Transmission Date: 20240409
  Serious: Yes (Other)
  Sender: FDA-Public Use
  Company Number: US-ABBVIE-5611580

PATIENT
  Age: 81 Year
  Sex: Male

DRUGS (4)
  1. DALBAVANCIN HYDROCHLORIDE [Suspect]
     Active Substance: DALBAVANCIN HYDROCHLORIDE
     Indication: Product used for unknown indication
     Dosage: FORM STRENGTH: 1.500 MILLIGRAM?DURATION TEXT: 1 WEEK BREAK
     Route: 065
  2. DALBAVANCIN HYDROCHLORIDE [Suspect]
     Active Substance: DALBAVANCIN HYDROCHLORIDE
     Indication: Product used for unknown indication
     Dosage: FORM STRENGTH: 1.500 MILLIGRAM?DURATION TEXT: 8 WEEKS BREAK
     Route: 065
  3. DALBAVANCIN HYDROCHLORIDE [Suspect]
     Active Substance: DALBAVANCIN HYDROCHLORIDE
     Indication: Product used for unknown indication
     Dosage: FORM STRENGTH: 1.500 MILLIGRAM?DURATION TEXT: 1 WEEK BREAK
     Route: 065
  4. DALBAVANCIN HYDROCHLORIDE [Suspect]
     Active Substance: DALBAVANCIN HYDROCHLORIDE
     Indication: Product used for unknown indication
     Dosage: FORM STRENGTH: 1.500 MILLIGRAM?DURATION TEXT: 8 WEEKS BREAK
     Route: 065

REACTIONS (1)
  - Staphylococcal osteomyelitis [Unknown]
